FAERS Safety Report 26115118 (Version 1)
Quarter: 2025Q4

REPORT INFORMATION
  Report Type: Spontaneous
  Country: JP (occurrence: JP)
  Receive Date: 20251203
  Receipt Date: 20251203
  Transmission Date: 20260118
  Serious: Yes (Hospitalization, Other)
  Sender: MERCK SHARP & DOHME LLC
  Company Number: JP-009507513-2355606

PATIENT
  Age: 9 Decade
  Sex: Female

DRUGS (1)
  1. WELIREG [Suspect]
     Active Substance: BELZUTIFAN
     Indication: Renal cell carcinoma stage IV
     Dosage: STRENGTH: 40MG
     Route: 048
     Dates: start: 202509, end: 202511

REACTIONS (2)
  - Malignant neoplasm progression [Unknown]
  - Hypoxia [Recovered/Resolved]

NARRATIVE: CASE EVENT DATE: 20250101
